FAERS Safety Report 21278356 (Version 2)
Quarter: 2022Q3

REPORT INFORMATION
  Report Type: Report from Study
  Country: US (occurrence: US)
  Receive Date: 20220831
  Receipt Date: 20220923
  Transmission Date: 20221027
  Serious: Yes (Other)
  Sender: FDA-Public Use
  Company Number: US-XERIS PHARMACEUTICALS-2022XER00307

PATIENT
  Age: 51 Year
  Sex: Female
  Weight: 80.272 kg

DRUGS (6)
  1. KEVEYIS [Suspect]
     Active Substance: DICHLORPHENAMIDE
     Indication: Paralysis
     Dosage: 1 TABLET (50 MG), 1X/DAY
     Route: 048
     Dates: start: 20210708
  2. KEVEYIS [Suspect]
     Active Substance: DICHLORPHENAMIDE
     Indication: Familial periodic paralysis
  3. CYTOMEL [Concomitant]
     Active Substance: LIOTHYRONINE SODIUM
     Indication: Hypothyroidism
     Dosage: ONE-HALF (12.5 ?G), 1X/DAY
     Route: 048
     Dates: start: 20220713
  4. LEVOCETIRIZINE [Concomitant]
     Active Substance: LEVOCETIRIZINE
     Dosage: 1 TABLETS, 1X/DAY AS NEEDED
     Route: 048
  5. SYNTHROID [Concomitant]
     Active Substance: LEVOTHYROXINE SODIUM
     Indication: Hypothyroidism
     Dosage: 1 TABLETS, 1X/DAY
     Route: 048
  6. CYCLOBENZAPRINE [Concomitant]
     Active Substance: CYCLOBENZAPRINE
     Dosage: 1 TABLETS, 2X/DAY FOR 10 DAYS

REACTIONS (7)
  - Neurilemmoma benign [Recovered/Resolved]
  - Seasonal allergy [Not Recovered/Not Resolved]
  - Acrochordon [Unknown]
  - Arthropod bite [Unknown]
  - Overweight [Not Recovered/Not Resolved]
  - Blood urea nitrogen/creatinine ratio increased [Unknown]
  - Blood chloride increased [Unknown]

NARRATIVE: CASE EVENT DATE: 20220225
